FAERS Safety Report 5394117-5 (Version None)
Quarter: 2007Q3

REPORT INFORMATION
  Report Type: 
  Country: None (occurrence: None)
  Receive Date: 20070723
  Receipt Date: 20070709
  Transmission Date: 20080115
  Serious: No
  Sender: FDA-Public Use
  Company Number: FR-GENENTECH-241007

PATIENT
  Sex: Female
  Weight: 85 kg

DRUGS (1)
  1. XOLAIR [Suspect]
     Indication: ASTHMA
     Dosage: UNK, UNK
     Route: 058
     Dates: start: 20061212, end: 20070619

REACTIONS (1)
  - WEIGHT INCREASED [None]
